FAERS Safety Report 24971963 (Version 1)
Quarter: 2025Q1

REPORT INFORMATION
  Report Type: Spontaneous
  Country: US (occurrence: US)
  Receive Date: 20250214
  Receipt Date: 20250214
  Transmission Date: 20250409
  Serious: No
  Sender: EISAI
  Company Number: US-Eisai-EC-2025-183472

PATIENT
  Sex: Female

DRUGS (3)
  1. LENVIMA [Suspect]
     Active Substance: LENVATINIB
     Indication: Product used for unknown indication
  2. LENVIMA [Suspect]
     Active Substance: LENVATINIB
  3. LENVIMA [Suspect]
     Active Substance: LENVATINIB

REACTIONS (1)
  - Gastrointestinal disorder [Unknown]
